FAERS Safety Report 4613364-0 (Version None)
Quarter: 2005Q1

REPORT INFORMATION
  Report Type: 
  Country: None (occurrence: None)
  Receive Date: 20050316
  Receipt Date: 20050302
  Transmission Date: 20050727
  Serious: Yes (Life-Threatening, Hospitalization)
  Sender: FDA-Public Use
  Company Number: FR_041105166

PATIENT
  Age: 30 Year
  Sex: Female
  Weight: 61 kg

DRUGS (4)
  1. PROZAC [Suspect]
     Indication: DYSTHYMIC DISORDER
     Dosage: 10 MG DAY
  2. MOCLAMINE (MOCLOBEMIDE) [Concomitant]
  3. SOLIAN (AMISULPRIDE) [Concomitant]
  4. ZOLPIDEM TARTRATE [Concomitant]

REACTIONS (8)
  - CHILLS [None]
  - COMA [None]
  - CONVULSION [None]
  - DRUG INTERACTION [None]
  - HYPERTHERMIA [None]
  - HYPERTONIA [None]
  - MYOCLONUS [None]
  - SEROTONIN SYNDROME [None]
